FAERS Safety Report 18989635 (Version 1)
Quarter: 2021Q1

REPORT INFORMATION
  Report Type: Spontaneous
  Country: JP (occurrence: JP)
  Receive Date: 20210310
  Receipt Date: 20210310
  Transmission Date: 20210420
  Serious: Yes (Other)
  Sender: FDA-Public Use
  Company Number: JP-ROCHE-2786365

PATIENT
  Sex: Female

DRUGS (2)
  1. ABRAXANE [Concomitant]
     Active Substance: PACLITAXEL
     Indication: TRIPLE NEGATIVE BREAST CANCER
     Dosage: DOSAGE IS UNCERTAIN.
     Route: 041
  2. TECENTRIQ [Suspect]
     Active Substance: ATEZOLIZUMAB
     Indication: TRIPLE NEGATIVE BREAST CANCER
     Route: 041
     Dates: end: 2020

REACTIONS (2)
  - Dyspnoea [Recovered/Resolved]
  - Interstitial lung disease [Recovered/Resolved]

NARRATIVE: CASE EVENT DATE: 202011
